FAERS Safety Report 16878603 (Version 2)
Quarter: 2019Q4

REPORT INFORMATION
  Report Type: Spontaneous
  Country: US (occurrence: US)
  Receive Date: 20191002
  Receipt Date: 20191009
  Transmission Date: 20200122
  Serious: No
  Sender: FDA-Public Use
  Company Number: US-SA-2019SA263757

PATIENT
  Age: 16 Year
  Sex: Female

DRUGS (3)
  1. DUPIXENT [Suspect]
     Active Substance: DUPILUMAB
     Dosage: 600 MG, QOW
     Route: 058
     Dates: start: 2019, end: 2019
  2. LINZESS [Concomitant]
     Active Substance: LINACLOTIDE
     Dosage: UNK UNK, UNK
  3. DUPIXENT [Suspect]
     Active Substance: DUPILUMAB
     Indication: DERMATITIS ATOPIC
     Dosage: 600 MG, 1X
     Route: 058
     Dates: start: 201908, end: 201908

REACTIONS (2)
  - Incorrect dose administered [Unknown]
  - Therapeutic response decreased [Unknown]

NARRATIVE: CASE EVENT DATE: 2019
